FAERS Safety Report 25788042 (Version 2)
Quarter: 2025Q4

REPORT INFORMATION
  Report Type: Spontaneous
  Country: EU (occurrence: EU)
  Receive Date: 20250910
  Receipt Date: 20251002
  Transmission Date: 20260117
  Serious: No
  Sender: BOEHRINGER INGELHEIM
  Company Number: EU-BoehringerIngelheim-2025-BI-093929

PATIENT
  Sex: Male
  Weight: 100 kg

DRUGS (9)
  1. OFEV [Suspect]
     Active Substance: NINTEDANIB
     Indication: Idiopathic pulmonary fibrosis
     Dates: start: 2021
  2. INDACATEROL [Concomitant]
     Active Substance: INDACATEROL
     Indication: Product used for unknown indication
  3. HYDROCHLOROTHIAZIDE [Concomitant]
     Active Substance: HYDROCHLOROTHIAZIDE
     Indication: Cardiac disorder
  4. IRBESARTAN [Concomitant]
     Active Substance: IRBESARTAN
     Indication: Cardiac disorder
  5. KARDEGIC [Concomitant]
     Active Substance: ASPIRIN DL-LYSINE
     Indication: Cardiac disorder
  6. METFORMIN HYDROCHLORIDE [Concomitant]
     Active Substance: METFORMIN HYDROCHLORIDE
     Indication: Diabetes mellitus
  7. GLICLAZIDE LP [Concomitant]
     Indication: Diabetes mellitus
     Dosage: 2 TABLET OF 60MG ON MORNING
  8. PROPRANOLOL [Concomitant]
     Active Substance: PROPRANOLOL HYDROCHLORIDE
     Indication: Tremor
  9. SPASFON 80/80 [Concomitant]
     Indication: Abdominal pain
     Dosage: 1 TABLET UP TO 4 TIMES A DAY 6 HOURS APART IF ABDOMINAL PAIN

REACTIONS (3)
  - Disease progression [Unknown]
  - Gastrointestinal disorder [Unknown]
  - Diarrhoea [Unknown]
